FAERS Safety Report 14304766 (Version 1)
Quarter: 2017Q4

REPORT INFORMATION
  Report Type: Spontaneous
  Country: JP (occurrence: JP)
  Receive Date: 20171219
  Receipt Date: 20171219
  Transmission Date: 20180321
  Serious: Yes (Hospitalization)
  Sender: FDA-Public Use
  Company Number: JP-OTSUKA-011773

PATIENT
  Age: 61 Year
  Sex: Male
  Weight: 73 kg

DRUGS (15)
  1. WINTERMIN [Concomitant]
     Active Substance: PROMAZINE
     Indication: INSOMNIA
  2. ITRIZOLE [Suspect]
     Active Substance: ITRACONAZOLE
     Dosage: UNK, UNK
     Route: 048
     Dates: start: 20100622, end: 20100923
  3. ITRACONAZOLE. [Suspect]
     Active Substance: ITRACONAZOLE
     Dosage: UNK
     Route: 048
     Dates: start: 20100622, end: 20100923
  4. QUETIAPINE. [Concomitant]
     Active Substance: QUETIAPINE
     Dosage: SEROQUEL TABS
     Dates: start: 20100604, end: 20100925
  5. TASMOLIN [Concomitant]
     Active Substance: BIPERIDEN
     Dosage: 1 MG, BID
     Route: 048
     Dates: end: 20100925
  6. WINTERMIN [Concomitant]
     Active Substance: PROMAZINE
     Indication: DELUSION
     Dosage: UNK, UNK
     Route: 048
     Dates: start: 20100619, end: 20100922
  7. ABILIFY [Suspect]
     Active Substance: ARIPIPRAZOLE
     Indication: DELUSION
     Dosage: 6 MG, QD
     Route: 048
     Dates: start: 20100623, end: 20100925
  8. TEGRETOL [Suspect]
     Active Substance: CARBAMAZEPINE
     Dosage: UNK, UNK
     Route: 048
     Dates: start: 20100724, end: 20100922
  9. SEROQUEL [Concomitant]
     Active Substance: QUETIAPINE FUMARATE
     Indication: DELUSION
     Dosage: 100 MG, QD
     Route: 048
     Dates: start: 20100604, end: 20100925
  10. ROHYPNOL [Concomitant]
     Active Substance: FLUNITRAZEPAM
     Indication: INSOMNIA
     Dosage: 2 MG, QD
     Route: 048
     Dates: end: 20100925
  11. SERENACE [Concomitant]
     Active Substance: HALOPERIDOL
     Indication: DELUSION
     Dosage: 3 MG, TID
     Route: 048
     Dates: start: 20100619
  12. FLUNITRAZEPAM [Concomitant]
     Active Substance: FLUNITRAZEPAM
     Dosage: 2 MG, UNK
     Dates: end: 20100925
  13. CARBAMAZEPINE. [Suspect]
     Active Substance: CARBAMAZEPINE
     Dosage: UNK
     Route: 048
     Dates: start: 20100724, end: 20100922
  14. LEXOTAN [Concomitant]
     Active Substance: BROMAZEPAM
     Indication: ANXIETY
     Dosage: 2 MG, BID
     Route: 048
     Dates: start: 20100619, end: 20100925
  15. CHLORPROMAZINE HCL [Concomitant]
     Active Substance: CHLORPROMAZINE HYDROCHLORIDE
     Dosage: UNK
     Dates: start: 20100619, end: 20100922

REACTIONS (1)
  - Drug reaction with eosinophilia and systemic symptoms [Recovering/Resolving]

NARRATIVE: CASE EVENT DATE: 20100910
